FAERS Safety Report 11765984 (Version 1)
Quarter: 2015Q4

REPORT INFORMATION
  Report Type: Report from Study
  Country: CA (occurrence: CA)
  Receive Date: 20151122
  Receipt Date: 20151122
  Transmission Date: 20160304
  Serious: Yes (Death)
  Sender: FDA-Public Use
  Company Number: PHHY2012CA104555

PATIENT
  Sex: Male

DRUGS (1)
  1. SANDOSTATIN LAR DEPOT [Suspect]
     Active Substance: OCTREOTIDE ACETATE
     Indication: CARCINOID TUMOUR OF THE SMALL BOWEL
     Dosage: 30 MG, EVERY FOUR WEEKS (QMO)
     Route: 030
     Dates: start: 20090703

REACTIONS (3)
  - Influenza [Unknown]
  - Malaise [Unknown]
  - Death [Fatal]
